FAERS Safety Report 5021978-1 (Version None)
Quarter: 2006Q2

REPORT INFORMATION
  Report Type: 
  Country: None (occurrence: None)
  Receive Date: 20060605
  Receipt Date: 20060525
  Transmission Date: 20061013
  Serious: Yes (Other)
  Sender: FDA-Public Use
  Company Number: 2006068353

PATIENT
  Age: 10 Year
  Sex: Male
  Weight: 43.2 kg

DRUGS (4)
  1. GENOTROPIN [Suspect]
     Indication: ANAPLASTIC ASTROCYTOMA
     Dosage: SEE IMAGE
     Route: 058
     Dates: start: 20040401
  2. GENOTROPIN [Suspect]
     Indication: HYPOPITUITARISM
     Dosage: SEE IMAGE
     Route: 058
     Dates: start: 20040401
  3. THYROXIN (LEVOTHYROXINE SODIUM) [Concomitant]
  4. PROSTAP (LEUPRORELIN ACETATE) [Concomitant]

REACTIONS (6)
  - ANAPLASTIC ASTROCYTOMA [None]
  - CONDITION AGGRAVATED [None]
  - MALIGNANT NEOPLASM PROGRESSION [None]
  - METASTASES TO CENTRAL NERVOUS SYSTEM [None]
  - METASTASES TO SPINE [None]
  - VISUAL ACUITY REDUCED [None]
